FAERS Safety Report 4423555-X (Version None)
Quarter: 2004Q3

REPORT INFORMATION
  Report Type: 
  Country: None (occurrence: None)
  Receive Date: 20040805
  Receipt Date: 20040723
  Transmission Date: 20050211
  Serious: No
  Sender: FDA-Public Use
  Company Number: 04H-062-0268370-00

PATIENT
  Age: 58 Year
  Sex: Female
  Weight: 71 kg

DRUGS (6)
  1. SUCCINYLCHOLINE CHLORIDE [Suspect]
     Indication: ANAESTHESIA
     Dosage: 100 MG,
  2. ETOMIDE INJECTION (ETOMIDATE) (ETOMIDATE) [Suspect]
     Indication: ANAESTHESIA
     Dosage: 14 MG
  3. FENTANYL [Suspect]
     Indication: ANAESTHESIA
     Dosage: 0.3 MG
  4. DIAZEPAM [Concomitant]
  5. MORPHINE SULFATE [Concomitant]
  6. VECURONIUM BROMIDE [Concomitant]

REACTIONS (3)
  - BLOOD PRESSURE DECREASED [None]
  - BRADYCARDIA [None]
  - DRUG INTERACTION [None]
